FAERS Safety Report 13695327 (Version 3)
Quarter: 2017Q3

REPORT INFORMATION
  Report Type: Spontaneous
  Country: US (occurrence: US)
  Receive Date: 20170627
  Receipt Date: 20170907
  Transmission Date: 20171127
  Serious: Yes (Death, Hospitalization, Other)
  Sender: FDA-Public Use
  Company Number: US-SAOL THERAPEUTICS-2017SAO01068

PATIENT
  Age: 68 Year
  Sex: Female

DRUGS (3)
  1. BACLOFEN. [Suspect]
     Active Substance: BACLOFEN
     Indication: MUSCLE SPASTICITY
     Dosage: 227 ?G, \DAY
     Route: 037
  2. BACLOFEN. [Suspect]
     Active Substance: BACLOFEN
     Dosage: 173.23 ?G, \DAY
     Route: 037
  3. BACLOFEN. [Suspect]
     Active Substance: BACLOFEN
     Indication: MUSCLE SPASTICITY
     Dosage: 299.8 ?G, \DAY
     Route: 037
     Dates: start: 20170706

REACTIONS (5)
  - Cardiac failure [Fatal]
  - Therapy non-responder [Unknown]
  - Seizure [Unknown]
  - Immunodeficiency [Unknown]
  - Muscle spasms [Unknown]

NARRATIVE: CASE EVENT DATE: 201705
